FAERS Safety Report 14162730 (Version 1)
Quarter: 2017Q4

REPORT INFORMATION
  Report Type: Report from Study
  Country: None (occurrence: US)
  Receive Date: 20171106
  Receipt Date: 20171106
  Transmission Date: 20180321
  Serious: Yes (Hospitalization, Other)
  Sender: FDA-Public Use
  Company Number: US-ABBVIE-17P-163-2148946-00

PATIENT
  Age: 32 Year
  Sex: Female

DRUGS (3)
  1. LEUPROLIDE ACETATE. [Suspect]
     Active Substance: LEUPROLIDE ACETATE
     Indication: ENDOMETRIOSIS
     Route: 058
     Dates: end: 201610
  2. LUPANETA PACK [Suspect]
     Active Substance: LEUPROLIDE ACETATE\NORETHINDRONE ACETATE
     Indication: ENDOMETRIOSIS
     Route: 048
     Dates: start: 20161028
  3. LUPANETA PACK [Suspect]
     Active Substance: LEUPROLIDE ACETATE\NORETHINDRONE ACETATE
     Indication: ENDOMETRIOSIS
     Route: 030
     Dates: start: 20161028

REACTIONS (12)
  - Impaired gastric emptying [Not Recovered/Not Resolved]
  - Ovarian cyst [Unknown]
  - Gastrointestinal disorder [Recovered/Resolved]
  - Weight decreased [Recovering/Resolving]
  - Campylobacter infection [Recovered/Resolved]
  - Pulmonary embolism [Recovered/Resolved]
  - Pancreatitis [Recovered/Resolved]
  - Flatulence [Recovered/Resolved]
  - Haematoma [Unknown]
  - Failure to thrive [Not Recovered/Not Resolved]
  - Autoimmune dermatitis [Recovered/Resolved]
  - Deep vein thrombosis [Unknown]

NARRATIVE: CASE EVENT DATE: 2015
